FAERS Safety Report 10236413 (Version 3)
Quarter: 2014Q3

REPORT INFORMATION
  Report Type: Spontaneous
  Country: JP (occurrence: JP)
  Receive Date: 20140613
  Receipt Date: 20140730
  Transmission Date: 20150326
  Serious: Yes (Other)
  Sender: FDA-Public Use
  Company Number: JP-EISAI INC-E2090-03332-SPO-JP

PATIENT
  Age: 14 Year
  Sex: Female

DRUGS (14)
  1. SEROQUEL [Concomitant]
     Active Substance: QUETIAPINE FUMARATE
     Dosage: 200 MG/DAY
     Route: 048
     Dates: start: 20130722, end: 20130724
  2. SEROQUEL [Concomitant]
     Active Substance: QUETIAPINE FUMARATE
     Dosage: 250 MG/DAY
     Route: 048
     Dates: start: 20130725, end: 20130813
  3. EXCEGRAN [Suspect]
     Active Substance: ZONISAMIDE
     Dosage: 300 MG/DAY
     Route: 048
     Dates: start: 20130709, end: 20130730
  4. RISPERDAL [Concomitant]
     Active Substance: RISPERIDONE
     Indication: IMPULSIVE BEHAVIOUR
     Dosage: DOSE UNKNOWN
     Route: 048
     Dates: start: 20120810
  5. ABILIFY [Concomitant]
     Active Substance: ARIPIPRAZOLE
     Indication: IMPULSIVE BEHAVIOUR
     Dosage: DOSE UNKNOWN
     Route: 048
     Dates: start: 20130613, end: 20130619
  6. EXCEGRAN [Suspect]
     Active Substance: ZONISAMIDE
     Indication: EPILEPSY
     Dosage: 200 MG/DAY
     Route: 048
     Dates: start: 20130627, end: 20130708
  7. ABILIFY [Concomitant]
     Active Substance: ARIPIPRAZOLE
     Dosage: 24 MG/DAILY
     Route: 048
     Dates: start: 20130626, end: 20130819
  8. DEPAKENE [Concomitant]
     Active Substance: VALPROIC ACID
     Indication: EPILEPSY
     Dosage: 600 MG/DAY
     Route: 048
     Dates: start: 200804
  9. CONCERTA [Concomitant]
     Active Substance: METHYLPHENIDATE HYDROCHLORIDE
     Indication: HYPERKINESIA
     Dosage: DOSE UNKNOWN
     Route: 048
     Dates: start: 201008, end: 20130718
  10. SEROQUEL [Concomitant]
     Active Substance: QUETIAPINE FUMARATE
     Indication: RESTLESSNESS
     Dosage: 50 MG/DAY
     Route: 048
     Dates: start: 20130716, end: 20130721
  11. ABILIFY [Concomitant]
     Active Substance: ARIPIPRAZOLE
     Dosage: 12 MG/DAILY
     Route: 048
     Dates: start: 20130620, end: 20130626
  12. STRATTERA [Concomitant]
     Active Substance: ATOMOXETINE HYDROCHLORIDE
     Indication: HYPERKINESIA
     Dosage: DOSE UNKNOWN
     Route: 048
     Dates: start: 20120105, end: 20130704
  13. ZYPREXA [Concomitant]
     Active Substance: OLANZAPINE
     Indication: IMPULSIVE BEHAVIOUR
     Dosage: 5 MG/DAY
     Route: 048
     Dates: start: 20121221, end: 20130709
  14. TASMOLIN [Concomitant]
     Active Substance: BIPERIDEN
     Indication: PARKINSONISM
     Dosage: 2 MG/DAY
     Route: 048
     Dates: start: 20130709, end: 20130813

REACTIONS (3)
  - Catatonia [Recovered/Resolved with Sequelae]
  - Insomnia [Recovered/Resolved]
  - Confusional state [Recovered/Resolved]

NARRATIVE: CASE EVENT DATE: 20130714
